FAERS Safety Report 8507673-2 (Version None)
Quarter: 2012Q3

REPORT INFORMATION
  Report Type: 
  Country: None (occurrence: None)
  Receive Date: 20120713
  Receipt Date: 20120303
  Transmission Date: 20120928
  Serious: Yes (Other)
  Sender: FDA-Public Use
  Company Number: US-JNJCP-30000093937

PATIENT
  Age: 30 Year
  Sex: Male

DRUGS (1)
  1. REMBRANDT WHITENING MOUTHWASH USA RBWHMWUS [Suspect]
     Route: 049
     Dates: start: 20120301

REACTIONS (2)
  - APPLICATION SITE BURN [None]
  - APPLICATION SITE EXFOLIATION [None]
